FAERS Safety Report 14038246 (Version 1)
Quarter: 2017Q4

REPORT INFORMATION
  Report Type: Spontaneous
  Country: US (occurrence: US)
  Receive Date: 20171004
  Receipt Date: 20171004
  Transmission Date: 20180321
  Serious: No
  Sender: FDA-Public Use
  Company Number: US-GALDERMA-US17001529

PATIENT
  Sex: 0

DRUGS (2)
  1. ISOTRETINOIN. [Concomitant]
     Active Substance: ISOTRETINOIN
     Indication: PRODUCT USED FOR UNKNOWN INDICATION
  2. MIRVASO [Suspect]
     Active Substance: BRIMONIDINE TARTRATE
     Indication: ERYTHEMA
     Route: 061

REACTIONS (2)
  - Product use in unapproved indication [Unknown]
  - Rebound effect [Unknown]

NARRATIVE: CASE EVENT DATE: 2017
